FAERS Safety Report 8988010 (Version 1)
Quarter: 2012Q4

REPORT INFORMATION
  Report Type: Report from Study
  Country: ES (occurrence: ES)
  Receive Date: 20121227
  Receipt Date: 20121227
  Transmission Date: 20130627
  Serious: Yes (Hospitalization)
  Sender: FDA-Public Use
  Company Number: ES-BAXTER-2012BAX027242

PATIENT
  Age: 70 Year
  Sex: Male

DRUGS (3)
  1. GENOXAL [Suspect]
     Indication: CHRONIC LYMPHOCYTIC LEUKEMIA
     Route: 042
     Dates: end: 20100209
  2. RITUXIMAB [Suspect]
     Indication: CHRONIC LYMPHOCYTIC LEUKEMIA
     Route: 042
     Dates: start: 20090616, end: 20100209
  3. FLUDARABINE [Suspect]
     Indication: CHRONIC LYMPHOCYTIC LEUKEMIA
     Route: 065
     Dates: end: 20100209

REACTIONS (1)
  - Pharyngitis [Recovered/Resolved]
